FAERS Safety Report 10156983 (Version 1)
Quarter: 2014Q2

REPORT INFORMATION
  Report Type: Spontaneous
  Country: FR (occurrence: FR)
  Receive Date: 20140507
  Receipt Date: 20140507
  Transmission Date: 20141212
  Serious: Yes (Hospitalization)
  Sender: FDA-Public Use
  Company Number: FR-SA-2014SA054227

PATIENT
  Age: 33 Year
  Sex: Male

DRUGS (18)
  1. RIFATER [Suspect]
     Indication: LYMPH NODE TUBERCULOSIS
     Dosage: DOSE:5 UNIT(S)
     Route: 048
     Dates: start: 20131123, end: 20140115
  2. RIFATER [Suspect]
     Indication: PERITONEAL TUBERCULOSIS
     Dosage: DOSE:5 UNIT(S)
     Route: 048
     Dates: start: 20131123, end: 20140115
  3. AUGMENTIN [Suspect]
     Indication: TONSILLITIS
     Route: 048
     Dates: start: 20140107, end: 20140113
  4. DEXAMBUTOL [Suspect]
     Indication: LYMPH NODE TUBERCULOSIS
     Dosage: DOSE:2 UNIT(S)
     Route: 048
     Dates: start: 20131123, end: 20140115
  5. DEXAMBUTOL [Suspect]
     Indication: PERITONEAL TUBERCULOSIS
     Dosage: DOSE:2 UNIT(S)
     Route: 048
     Dates: start: 20131123, end: 20140115
  6. RIMACTAN [Suspect]
     Indication: LYMPH NODE TUBERCULOSIS
     Route: 048
     Dates: start: 20131123, end: 20140115
  7. RIMACTAN [Suspect]
     Indication: PERITONEAL TUBERCULOSIS
     Route: 048
     Dates: start: 20131123, end: 20140115
  8. TRUVADA [Suspect]
     Indication: VIRAL TEST POSITIVE
     Dosage: DOSE:1 UNIT(S)
     Route: 048
     Dates: start: 20131211, end: 20140115
  9. ISENTRESS [Suspect]
     Indication: VIRAL TEST POSITIVE
     Route: 048
     Dates: start: 20131211, end: 20140115
  10. ATARAX [Concomitant]
     Route: 048
  11. BACTRIM [Concomitant]
     Dosage: DOSE:1 UNIT(S)
     Route: 048
  12. BECILAN [Concomitant]
     Dosage: DOSE:1 UNIT(S)
     Route: 048
  13. DIFFU K [Concomitant]
     Dosage: DOSE:2 UNIT(S)
     Route: 048
  14. FUNGIZONE [Concomitant]
     Dosage: DOSE:6 UNIT(S)
     Route: 048
  15. LOVENOX [Concomitant]
     Route: 058
  16. PHOSPHONEUROS [Concomitant]
     Dosage: DOSE:2 UNIT(S)
     Route: 048
  17. ZOPICLONE [Concomitant]
     Dosage: DOSE:1 UNIT(S)
     Route: 048
  18. ZYPREXA [Concomitant]
     Route: 048

REACTIONS (1)
  - Drug reaction with eosinophilia and systemic symptoms [Recovering/Resolving]
